FAERS Safety Report 19146388 (Version 1)
Quarter: 2021Q2

REPORT INFORMATION
  Report Type: Spontaneous
  Country: CA (occurrence: CA)
  Receive Date: 20210416
  Receipt Date: 20210416
  Transmission Date: 20210717
  Serious: Yes (Hospitalization)
  Sender: FDA-Public Use
  Company Number: CA-PFIZER INC-2021386555

PATIENT
  Age: 5 Year
  Sex: Female

DRUGS (3)
  1. COSMEGEN [Suspect]
     Active Substance: DACTINOMYCIN
     Route: 058
  2. DOXORUBICIN HCL [Suspect]
     Active Substance: DOXORUBICIN HYDROCHLORIDE
     Route: 058
  3. VINCRISTINE SULFATE. [Suspect]
     Active Substance: VINCRISTINE SULFATE
     Route: 058

REACTIONS (1)
  - Febrile neutropenia [Unknown]
